APPROVED DRUG PRODUCT: LEVOCETIRIZINE DIHYDROCHLORIDE
Active Ingredient: LEVOCETIRIZINE DIHYDROCHLORIDE
Strength: 5MG
Dosage Form/Route: TABLET;ORAL
Application: A211983 | Product #001
Applicant: PERRIGO R AND D CO
Approved: Mar 28, 2019 | RLD: No | RS: No | Type: OTC